FAERS Safety Report 7767390-3 (Version None)
Quarter: 2011Q3

REPORT INFORMATION
  Report Type: 
  Country: None (occurrence: None)
  Receive Date: 20110922
  Receipt Date: 20100809
  Transmission Date: 20111222
  Serious: Yes (Hospitalization)
  Sender: FDA-Public Use
  Company Number: US-ASTRAZENECA-2007UW25124

PATIENT
  Age: 37 Year
  Sex: Female
  Weight: 99.8 kg

DRUGS (6)
  1. MOTRIN [Concomitant]
  2. COMBIVENT [Concomitant]
     Route: 048
  3. SEROQUEL [Suspect]
     Route: 048
     Dates: start: 20060116, end: 20060512
  4. SEROQUEL [Suspect]
     Indication: DEPRESSION
     Dosage: 25 - 500 MG
     Route: 048
     Dates: start: 20010718
  5. DEPAKOTE [Concomitant]
     Dosage: 500 - 1000 MG
     Route: 048
  6. RISPERDAL [Concomitant]
     Indication: DEPRESSION
     Route: 048
     Dates: start: 20060101, end: 20060101

REACTIONS (7)
  - TYPE 2 DIABETES MELLITUS [None]
  - HYPERGLYCAEMIA [None]
  - OBESITY [None]
  - DIABETIC COMPLICATION [None]
  - HYPOGLYCAEMIA [None]
  - GLUCOSE TOLERANCE IMPAIRED [None]
  - GLYCOSURIA [None]
